FAERS Safety Report 8506116-2 (Version None)
Quarter: 2012Q3

REPORT INFORMATION
  Report Type: 
  Country: None (occurrence: None)
  Receive Date: 20120712
  Receipt Date: 20120706
  Transmission Date: 20120928
  Serious: Yes (Hospitalization)
  Sender: FDA-Public Use
  Company Number: FR-ROCHE-1085367

PATIENT
  Sex: Male
  Weight: 74 kg

DRUGS (3)
  1. MYFORTIC [Concomitant]
     Dates: start: 20120310, end: 20120319
  2. CELLCEPT [Suspect]
     Indication: TRANSPLANT REJECTION
     Route: 002
     Dates: start: 20110412
  3. EVEROLIMUS [Suspect]
     Indication: TRANSPLANT REJECTION
     Route: 002
     Dates: start: 20110417

REACTIONS (5)
  - METABOLIC ACIDOSIS [None]
  - HYPOKALAEMIA [None]
  - MICROCYTIC ANAEMIA [None]
  - DEHYDRATION [None]
  - DIARRHOEA [None]
